FAERS Safety Report 12998784 (Version 2)
Quarter: 2016Q4

REPORT INFORMATION
  Report Type: Spontaneous
  Country: GR (occurrence: GR)
  Receive Date: 20161205
  Receipt Date: 20161215
  Transmission Date: 20170207
  Serious: Yes (Other)
  Sender: FDA-Public Use
  Company Number: GR-SA-2016SA215599

PATIENT
  Sex: Male

DRUGS (2)
  1. LANTUS [Suspect]
     Active Substance: INSULIN GLARGINE
     Dosage: DOSE:16 UNIT(S)
     Route: 058
     Dates: start: 201608
  2. DIAMICRON [Concomitant]
     Active Substance: GLICLAZIDE

REACTIONS (4)
  - Abdominal pain [Recovered/Resolved]
  - Oedema [Recovered/Resolved]
  - Product use issue [Unknown]
  - Renal failure [Unknown]

NARRATIVE: CASE EVENT DATE: 20161122
